FAERS Safety Report 13071816 (Version 1)
Quarter: 2016Q4

REPORT INFORMATION
  Report Type: Spontaneous
  Country: IT (occurrence: IT)
  Receive Date: 20161229
  Receipt Date: 20161229
  Transmission Date: 20170207
  Serious: Yes (Other)
  Sender: FDA-Public Use
  Company Number: IT-PFIZER INC-2016551044

PATIENT
  Age: 75 Year
  Sex: Female

DRUGS (3)
  1. ZANTIPRIDE [Suspect]
     Active Substance: ZOFENOPRIL
     Dosage: UNK
     Route: 065
  2. CORDARONE [Suspect]
     Active Substance: AMIODARONE HYDROCHLORIDE
     Dosage: UNK
     Route: 065
  3. PRADAXA [Suspect]
     Active Substance: DABIGATRAN ETEXILATE MESYLATE
     Dosage: UNK
     Route: 065

REACTIONS (4)
  - Pruritus [Unknown]
  - Urticaria [Unknown]
  - Dyspnoea [Unknown]
  - Erysipelas [Unknown]

NARRATIVE: CASE EVENT DATE: 20160711
